FAERS Safety Report 16261830 (Version 3)
Quarter: 2021Q3

REPORT INFORMATION
  Report Type: Report from Study
  Country: CA (occurrence: CA)
  Receive Date: 20190501
  Receipt Date: 20210909
  Transmission Date: 20211014
  Serious: Yes (Hospitalization)
  Sender: FDA-Public Use
  Company Number: CA-JNJFOC-20190440101

PATIENT
  Age: 16 Year
  Sex: Female
  Weight: 53.1 kg

DRUGS (2)
  1. REMICADE [Suspect]
     Active Substance: INFLIXIMAB
     Indication: COLITIS ULCERATIVE
     Dosage: PATIENT GOT REMICADE INFUSION ON 12?JUN?2017
     Route: 042
     Dates: start: 20170504
  2. REMICADE [Suspect]
     Active Substance: INFLIXIMAB
     Dosage: SINCE AUG?2019, PATIENT WAS ON REMICADE DOSE OF 500 MG (DOSE MORE THAN 9MG/KG) EVERY 5 WEEKS
     Route: 042
     Dates: start: 201908

REACTIONS (2)
  - Crohn^s disease [Not Recovered/Not Resolved]
  - Weight decreased [Unknown]

NARRATIVE: CASE EVENT DATE: 20190423
